FAERS Safety Report 25854112 (Version 2)
Quarter: 2025Q4

REPORT INFORMATION
  Report Type: Spontaneous
  Country: GB (occurrence: GB)
  Receive Date: 20250926
  Receipt Date: 20251016
  Transmission Date: 20260117
  Serious: Yes (Other)
  Sender: HILL DERMACEUTICALS, INC.
  Company Number: GB-Hill Dermaceuticals, Inc.-2185396

PATIENT
  Age: 60 Year
  Sex: Female
  Weight: 77.00 kg

DRUGS (1)
  1. FLUOROURACIL [Suspect]
     Active Substance: FLUOROURACIL
     Indication: Adverse drug reaction
     Dates: start: 20250712

REACTIONS (2)
  - Dizziness [Recovered/Resolved]
  - Palpitations [Recovered/Resolved]

NARRATIVE: CASE EVENT DATE: 20250720
